FAERS Safety Report 17728950 (Version 1)
Quarter: 2020Q2

REPORT INFORMATION
  Report Type: Spontaneous
  Country: US (occurrence: US)
  Receive Date: 20200430
  Receipt Date: 20200430
  Transmission Date: 20200714
  Serious: No
  Sender: FDA-Public Use
  Company Number: US-ELI_LILLY_AND_COMPANY-US202004000274

PATIENT
  Sex: Male

DRUGS (9)
  1. EMGALITY [Suspect]
     Active Substance: GALCANEZUMAB-GNLM
     Indication: MIGRAINE
     Dosage: 1 DOSAGE FORM, UNKNOWN
     Route: 065
     Dates: start: 202002
  2. EMGALITY [Suspect]
     Active Substance: GALCANEZUMAB-GNLM
     Dosage: 1 DOSAGE FORM
     Route: 065
  3. EMGALITY [Suspect]
     Active Substance: GALCANEZUMAB-GNLM
     Indication: MIGRAINE
     Dosage: 1 DOSAGE FORM, UNKNOWN
     Route: 065
     Dates: start: 202002
  4. EMGALITY [Suspect]
     Active Substance: GALCANEZUMAB-GNLM
     Dosage: 1 DOSAGE FORM
     Route: 065
  5. EMGALITY [Suspect]
     Active Substance: GALCANEZUMAB-GNLM
     Indication: MIGRAINE
     Dosage: 1 DOSAGE FORM, UNKNOWN
     Route: 058
  6. EMGALITY [Suspect]
     Active Substance: GALCANEZUMAB-GNLM
     Indication: BRAIN NEOPLASM
     Dosage: 1 DOSAGE FORM
     Route: 065
  7. EMGALITY [Suspect]
     Active Substance: GALCANEZUMAB-GNLM
     Indication: MIGRAINE
     Dosage: 1 DOSAGE FORM, UNKNOWN
     Route: 065
     Dates: start: 202002
  8. EMGALITY [Suspect]
     Active Substance: GALCANEZUMAB-GNLM
     Indication: BRAIN NEOPLASM
  9. EMGALITY [Suspect]
     Active Substance: GALCANEZUMAB-GNLM
     Indication: BRAIN NEOPLASM
     Dosage: 1 DOSAGE FORM
     Route: 065

REACTIONS (2)
  - Product dose omission [Unknown]
  - Headache [Not Recovered/Not Resolved]
